FAERS Safety Report 5552008-0 (Version None)
Quarter: 2007Q4

REPORT INFORMATION
  Report Type: 
  Country: None (occurrence: None)
  Receive Date: 20071212
  Receipt Date: 20071206
  Transmission Date: 20080405
  Serious: Yes (Hospitalization)
  Sender: FDA-Public Use
  Company Number: DE-GENENTECH-252418

PATIENT
  Age: 42 Year
  Sex: Male

DRUGS (8)
  1. XOLAIR [Suspect]
     Indication: ASTHMA
     Dosage: 600 MG, 1/MONTH
     Route: 058
     Dates: start: 20060701
  2. AEROBIN [Concomitant]
     Indication: DRUG USE FOR UNKNOWN INDICATION
  3. AZATIOPRIN [Concomitant]
     Indication: DRUG USE FOR UNKNOWN INDICATION
  4. CINEOLE [Concomitant]
     Indication: DRUG USE FOR UNKNOWN INDICATION
  5. CLAVERSAL [Concomitant]
     Indication: DRUG USE FOR UNKNOWN INDICATION
  6. ALBUTEROL [Concomitant]
     Indication: DRUG USE FOR UNKNOWN INDICATION
  7. SPIRIVA [Concomitant]
     Indication: DRUG USE FOR UNKNOWN INDICATION
  8. VIANI [Concomitant]
     Indication: DRUG USE FOR UNKNOWN INDICATION

REACTIONS (5)
  - BRONCHOPULMONARY ASPERGILLOSIS ALLERGIC [None]
  - CONDITION AGGRAVATED [None]
  - INFECTION [None]
  - PNEUMONIA [None]
  - RIGHT VENTRICULAR FAILURE [None]
